FAERS Safety Report 11869925 (Version 1)
Quarter: 2015Q4

REPORT INFORMATION
  Report Type: Spontaneous
  Country: US (occurrence: US)
  Receive Date: 20151228
  Receipt Date: 20151228
  Transmission Date: 20160305
  Serious: Yes (Other)
  Sender: FDA-Public Use
  Company Number: US-CIPLA LTD.-2015US09657

PATIENT

DRUGS (3)
  1. PETHIDINE [Suspect]
     Active Substance: MEPERIDINE
     Route: 064
  2. SERTRALINE [Suspect]
     Active Substance: SERTRALINE HYDROCHLORIDE
     Dosage: 100 MG, QD
     Route: 064
  3. RISPERIDONE. [Suspect]
     Active Substance: RISPERIDONE
     Indication: SCHIZOPHRENIA
     Dosage: 4 MG, QD
     Route: 064

REACTIONS (3)
  - Hypertonia [Unknown]
  - Feeling jittery [Unknown]
  - Foetal exposure during pregnancy [Unknown]
